FAERS Safety Report 17256104 (Version 1)
Quarter: 2020Q1

REPORT INFORMATION
  Report Type: Report from Study
  Country: US (occurrence: US)
  Receive Date: 20200110
  Receipt Date: 20200110
  Transmission Date: 20200409
  Serious: Yes (Other)
  Sender: FDA-Public Use
  Company Number: US-TEVA-2020-US-1166543

PATIENT
  Sex: Female

DRUGS (4)
  1. AUSTEDO [Suspect]
     Active Substance: DEUTETRABENAZINE
     Dosage: 60 MILLIGRAM DAILY; TWO 12MG + ONE 6MG TABLETS
     Route: 065
  2. AUSTEDO [Suspect]
     Active Substance: DEUTETRABENAZINE
     Dosage: 54 MILLIGRAM DAILY; 30MG IN THE MORNING AND 24MG IN THE EVENING
     Route: 065
  3. AUSTEDO [Suspect]
     Active Substance: DEUTETRABENAZINE
     Indication: HUNTINGTON^S DISEASE
     Dosage: ABOUT TWO AND A HALF YEARS AGO
     Route: 065
  4. AUSTEDO [Suspect]
     Active Substance: DEUTETRABENAZINE
     Dosage: 48 MILLIGRAM DAILY;
     Route: 065

REACTIONS (7)
  - Disturbance in attention [Unknown]
  - Unevaluable event [Unknown]
  - Parkinson^s disease [Unknown]
  - Speech disorder [Recovering/Resolving]
  - Product prescribing error [Unknown]
  - Impaired self-care [Recovering/Resolving]
  - Incorrect dose administered [Unknown]
